FAERS Safety Report 4373335-9 (Version None)
Quarter: 2004Q2

REPORT INFORMATION
  Report Type: 
  Country: None (occurrence: None)
  Receive Date: 20040603
  Receipt Date: 20040520
  Transmission Date: 20050107
  Serious: Yes (Hospitalization)
  Sender: FDA-Public Use
  Company Number: ZANA001311

PATIENT
  Age: 53 Year
  Sex: Female

DRUGS (1)
  1. ZANAFLEX [Suspect]
     Dosage: 8 MG DAILY ORAL
     Route: 048
     Dates: start: 20040226, end: 20040426

REACTIONS (4)
  - CONFUSIONAL STATE [None]
  - DRY MOUTH [None]
  - DYSARTHRIA [None]
  - FACIAL PALSY [None]
